FAERS Safety Report 22219597 (Version 1)
Quarter: 2023Q2

REPORT INFORMATION
  Report Type: Spontaneous
  Country: US (occurrence: US)
  Receive Date: 20230417
  Receipt Date: 20230417
  Transmission Date: 20230721
  Serious: No
  Sender: FDA-Public Use
  Company Number: US-BIOGEN-2022BI01083747

PATIENT
  Age: 53 Year
  Sex: Female

DRUGS (12)
  1. AVONEX PEN [Suspect]
     Active Substance: INTERFERON BETA-1A
     Indication: Multiple sclerosis
     Route: 050
     Dates: start: 20140921
  2. AVONEX PEN [Suspect]
     Active Substance: INTERFERON BETA-1A
  3. AVONEX PEN [Suspect]
     Active Substance: INTERFERON BETA-1A
  4. AVONEX PEN [Suspect]
     Active Substance: INTERFERON BETA-1A
  5. OXYBUTYNIN CHLORIDE [Concomitant]
     Active Substance: OXYBUTYNIN CHLORIDE
     Route: 050
  6. TEGRETOL [Concomitant]
     Active Substance: CARBAMAZEPINE
     Route: 050
  7. LYRICA [Concomitant]
     Active Substance: PREGABALIN
     Route: 050
  8. BACLOFEN [Concomitant]
     Active Substance: BACLOFEN
     Route: 050
  9. MECLIZINE HYDROCHLORIDE [Concomitant]
     Active Substance: MECLIZINE HYDROCHLORIDE
     Route: 050
  10. HERBALS [Concomitant]
     Active Substance: HERBALS
     Route: 050
  11. TRAMADOL [Concomitant]
     Active Substance: TRAMADOL
     Route: 050
  12. MIRALAX [Concomitant]
     Active Substance: POLYETHYLENE GLYCOL 3350
     Route: 050

REACTIONS (2)
  - Radiculopathy [Not Recovered/Not Resolved]
  - Multiple sclerosis [Unknown]

NARRATIVE: CASE EVENT DATE: 20210901
